FAERS Safety Report 9123401 (Version 1)
Quarter: 2013Q1

REPORT INFORMATION
  Report Type: Spontaneous
  Country: US (occurrence: US)
  Receive Date: 20130115
  Receipt Date: 20130115
  Transmission Date: 20140127
  Serious: No
  Sender: FDA-Public Use
  Company Number: US-BAYER-2013-003769

PATIENT
  Age: 43 Year
  Sex: Female

DRUGS (14)
  1. CIPRO [Suspect]
  2. BACLOFEN [Concomitant]
  3. CALCIUM D3 [CALCIUM CARBONATE,COLECALCIFEROL] [Concomitant]
     Dosage: 600MG (1500MG) - 200UNIT TAB
  4. CITALOPRAM [Concomitant]
  5. AMPYRA [Concomitant]
     Route: 048
  6. FESOTERODINE [Concomitant]
  7. GABAPENTIN [Concomitant]
  8. HYDROCODONE/ACETAMINOPHEN [Concomitant]
     Dosage: 5-500 MG
  9. LISINOPRIL [Concomitant]
     Route: 048
  10. MELOXICAM [Concomitant]
     Route: 048
  11. NATALIZUMAB [Concomitant]
     Dosage: 300MG/15ML
  12. OMEGA-3 [DOCOSAHEXANOIC ACID,EICOSAPENTAENOIC ACID] [Concomitant]
  13. WARFARIN [Concomitant]
  14. FISH OIL [Concomitant]

REACTIONS (1)
  - Hypersensitivity [None]
